FAERS Safety Report 24527445 (Version 1)
Quarter: 2024Q4

REPORT INFORMATION
  Report Type: Spontaneous
  Country: US (occurrence: US)
  Receive Date: 20241021
  Receipt Date: 20241021
  Transmission Date: 20250115
  Serious: No
  Sender: ASTELLAS
  Company Number: US-ASTELLAS-2024-AER-012426

PATIENT
  Age: 58 Year
  Sex: Female

DRUGS (1)
  1. VEOZAH [Suspect]
     Active Substance: FEZOLINETANT
     Indication: Product used for unknown indication
     Route: 065
     Dates: start: 20240617

REACTIONS (2)
  - Alopecia [Not Recovered/Not Resolved]
  - Polycystic ovaries [Unknown]

NARRATIVE: CASE EVENT DATE: 20240701
